FAERS Safety Report 15402670 (Version 1)
Quarter: 2018Q3

REPORT INFORMATION
  Report Type: Spontaneous
  Country: US (occurrence: US)
  Receive Date: 20180917
  Receipt Date: 20180917
  Transmission Date: 20181010
  Serious: Yes (Other)
  Sender: FDA-Public Use
  Company Number: None

PATIENT
  Age: 55 Year
  Sex: Male
  Weight: 67.5 kg

DRUGS (6)
  1. MELOXICAM. [Suspect]
     Active Substance: MELOXICAM
     Indication: INFLAMMATION
     Route: 048
     Dates: start: 20180913, end: 20180915
  2. ATORVASTATIN [Concomitant]
     Active Substance: ATORVASTATIN
  3. IBPROFIN [Concomitant]
  4. HYDROCODONE/ACETAMINOPHEN [Concomitant]
     Active Substance: ACETAMINOPHEN\HYDROCODONE
  5. MELOXICAM. [Suspect]
     Active Substance: MELOXICAM
     Indication: TENDONITIS
     Route: 048
     Dates: start: 20180913, end: 20180915
  6. ALPRAZOLAM. [Concomitant]
     Active Substance: ALPRAZOLAM

REACTIONS (11)
  - Diarrhoea [None]
  - Chills [None]
  - Impaired work ability [None]
  - Abdominal discomfort [None]
  - Feeling hot [None]
  - Nausea [None]
  - Dizziness [None]
  - Chest pain [None]
  - Feeling abnormal [None]
  - Abdominal pain [None]
  - Headache [None]

NARRATIVE: CASE EVENT DATE: 20180915
